FAERS Safety Report 10233697 (Version 1)
Quarter: 2014Q2

REPORT INFORMATION
  Report Type: Spontaneous
  Country: FR (occurrence: FR)
  Receive Date: 20140612
  Receipt Date: 20140612
  Transmission Date: 20141212
  Serious: Yes (Life-Threatening)
  Sender: FDA-Public Use
  Company Number: FR-PFIZER INC-2014159376

PATIENT
  Age: 76 Year
  Sex: Male

DRUGS (15)
  1. SOLU-MEDROL [Suspect]
     Indication: INFECTIVE EXACERBATION OF CHRONIC OBSTRUCTIVE AIRWAYS DISEASE
     Dosage: 1 DF, SINGLE
     Route: 042
     Dates: start: 20140520, end: 20140520
  2. COUMADINE [Concomitant]
  3. DUOPLAVIN [Concomitant]
  4. AMLOR [Concomitant]
  5. LASILIX [Concomitant]
  6. CORDARONE [Concomitant]
  7. SPIRIVA [Concomitant]
  8. VENTOLINE [Concomitant]
  9. PULMICORT [Concomitant]
  10. BRICANYL [Concomitant]
  11. OXEOL [Concomitant]
  12. XATRAL [Concomitant]
  13. DEROXAT [Concomitant]
  14. INEXIUM [Concomitant]
  15. CEFTRIAXONE [Concomitant]
     Indication: INFECTIVE EXACERBATION OF CHRONIC OBSTRUCTIVE AIRWAYS DISEASE
     Dosage: UNK
     Dates: start: 20140520

REACTIONS (2)
  - Bronchospasm [Recovered/Resolved]
  - Rash [Unknown]
